FAERS Safety Report 4591551-8 (Version None)
Quarter: 2005Q1

REPORT INFORMATION
  Report Type: 
  Country: None (occurrence: None)
  Receive Date: 20050223
  Receipt Date: 20050223
  Transmission Date: 20050727
  Serious: Yes (Hospitalization)
  Sender: FDA-Public Use
  Company Number: None

PATIENT
  Age: 60 Year
  Sex: Male
  Weight: 61.6892 kg

DRUGS (6)
  1. TAXOL [Suspect]
     Indication: PANCREATIC CARCINOMA
     Dosage: 76 MG WK IV
     Route: 042
     Dates: start: 20011210
  2. GEMZAR [Suspect]
     Indication: PANCREATIC CARCINOMA
     Dosage: 143 MG WKLY IV
     Route: 042
     Dates: start: 20011210
  3. DECADRON [Concomitant]
  4. TAGAMET [Concomitant]
  5. BENADRYL [Concomitant]
  6. ZOFRAN [Concomitant]

REACTIONS (4)
  - BLOOD GLUCOSE INCREASED [None]
  - CONFUSIONAL STATE [None]
  - POLYDIPSIA [None]
  - POLYURIA [None]
